FAERS Safety Report 20120723 (Version 1)
Quarter: 2021Q4

REPORT INFORMATION
  Report Type: Spontaneous
  Country: US (occurrence: None)
  Receive Date: 20211126
  Receipt Date: 20211126
  Transmission Date: 20220303
  Serious: Yes (Other)
  Sender: FDA-Public Use
  Company Number: None

PATIENT
  Age: 8 Year
  Sex: Female

DRUGS (1)
  1. FLUOROURACIL\SALICYLIC ACID [Suspect]
     Active Substance: FLUOROURACIL\SALICYLIC ACID
     Indication: Skin papilloma
     Dosage: OTHER QUANTITY : 1 5 GRAMS;?FREQUENCY : AT BEDTIME;?
     Route: 061
     Dates: start: 20081206, end: 20091206

REACTIONS (2)
  - Therapy non-responder [None]
  - Skin exfoliation [None]

NARRATIVE: CASE EVENT DATE: 20081206
